FAERS Safety Report 5821884-6 (Version None)
Quarter: 2008Q3

REPORT INFORMATION
  Report Type: 
  Country: None (occurrence: None)
  Receive Date: 20080722
  Receipt Date: 20080708
  Transmission Date: 20090109
  Serious: Yes (Death)
  Sender: FDA-Public Use
  Company Number: 14779

PATIENT
  Sex: Male

DRUGS (1)
  1. MORPHINE SULFATE ER   (ETHEX CORPORATION) [Suspect]
     Indication: PAIN

REACTIONS (1)
  - DEATH [None]
